FAERS Safety Report 25735435 (Version 2)
Quarter: 2025Q3

REPORT INFORMATION
  Report Type: Spontaneous
  Country: GB (occurrence: GB)
  Receive Date: 20250828
  Receipt Date: 20250903
  Transmission Date: 20251020
  Serious: Yes (Hospitalization)
  Sender: MYLAN
  Company Number: GB-MYLANLABS-2025M1031724

PATIENT
  Sex: Female

DRUGS (9)
  1. CLOZARIL [Suspect]
     Active Substance: CLOZAPINE
     Indication: Borderline personality disorder
  2. CLOZARIL [Suspect]
     Active Substance: CLOZAPINE
     Indication: Schizophrenia
  3. AMITRIPTYLINE [Concomitant]
     Active Substance: AMITRIPTYLINE
  4. MIRTAZAPINE [Concomitant]
     Active Substance: MIRTAZAPINE
  5. THIAMINE [Concomitant]
     Active Substance: THIAMINE
  6. NIACINAMIDE\PYRIDOXINE HYDROCHLORIDE\RIBOFLAVIN\THIAMINE HYDROCHLORIDE [Concomitant]
     Active Substance: NIACINAMIDE\PYRIDOXINE HYDROCHLORIDE\RIBOFLAVIN\THIAMINE HYDROCHLORIDE
  7. PROMETHAZINE [Concomitant]
     Active Substance: PROMETHAZINE HYDROCHLORIDE
  8. LITHIUM CARBONATE [Concomitant]
     Active Substance: LITHIUM CARBONATE
  9. LURASIDONE [Concomitant]
     Active Substance: LURASIDONE

REACTIONS (3)
  - Hospitalisation [Unknown]
  - Blood prolactin increased [Unknown]
  - Off label use [Unknown]

NARRATIVE: CASE EVENT DATE: 20250411
